FAERS Safety Report 8309435-8 (Version None)
Quarter: 2012Q2

REPORT INFORMATION
  Report Type: 
  Country: None (occurrence: None)
  Receive Date: 20120421
  Receipt Date: 20120421
  Transmission Date: 20120825
  Serious: Yes (Other)
  Sender: FDA-Public Use
  Company Number: None

PATIENT
  Age: 51 Year
  Sex: Female
  Weight: 47.1741 kg

DRUGS (1)
  1. VITAMIN D [Suspect]
     Indication: BONE DENSITY ABNORMAL
     Dosage: 1,000 IU QD PO
     Route: 048
     Dates: start: 20120419

REACTIONS (3)
  - DIARRHOEA [None]
  - PRODUCT CONTAMINATION [None]
  - INSOMNIA [None]
